FAERS Safety Report 10146069 (Version 2)
Quarter: 2014Q2

REPORT INFORMATION
  Report Type: Spontaneous
  Country: US (occurrence: US)
  Receive Date: 20140501
  Receipt Date: 20140529
  Transmission Date: 20141212
  Serious: No
  Sender: FDA-Public Use
  Company Number: US-ASTELLAS-2014US004265

PATIENT
  Sex: Male

DRUGS (2)
  1. MYRBETRIQ [Suspect]
     Indication: DYSURIA
     Route: 065
     Dates: start: 20140101, end: 20140201
  2. MYRBETRIQ [Suspect]
     Route: 065
     Dates: start: 20140418

REACTIONS (2)
  - Intentional product misuse [Unknown]
  - Off label use [Unknown]
